FAERS Safety Report 18583956 (Version 2)
Quarter: 2021Q2

REPORT INFORMATION
  Report Type: Spontaneous
  Country: CA (occurrence: CA)
  Receive Date: 20201207
  Receipt Date: 20210429
  Transmission Date: 20210717
  Serious: Yes (Life-Threatening, Hospitalization, Other)
  Sender: FDA-Public Use
  Company Number: CA-SA-2020SA347171

PATIENT
  Age: 69 Year
  Sex: Female

DRUGS (16)
  1. SENNOSIDES. [Concomitant]
     Active Substance: SENNOSIDES
  2. OXYCODONE [Concomitant]
     Active Substance: OXYCODONE
  3. GANCICLOVIR. [Concomitant]
     Active Substance: GANCICLOVIR
     Route: 042
  4. PANTOPRAZOLE [Concomitant]
     Active Substance: PANTOPRAZOLE
  5. NYSTATIN. [Concomitant]
     Active Substance: NYSTATIN
  6. THYMOGLOBULIN [Suspect]
     Active Substance: LAPINE T-LYMPHOCYTE IMMUNE GLOBULIN
     Dosage: 100 MG
     Route: 042
     Dates: start: 20200206
  7. FOLIC ACID. [Concomitant]
     Active Substance: FOLIC ACID
  8. PREDNISONE. [Concomitant]
     Active Substance: PREDNISONE
  9. MYCOPHENOLATE MOFETIL. [Concomitant]
     Active Substance: MYCOPHENOLATE MOFETIL
  10. SALBUTAMOL [Concomitant]
     Active Substance: ALBUTEROL
  11. ONDANSETRON [Concomitant]
     Active Substance: ONDANSETRON
  12. DIMENHYDRINATE. [Concomitant]
     Active Substance: DIMENHYDRINATE
  13. METHYLPREDNISOLONE. [Concomitant]
     Active Substance: METHYLPREDNISOLONE
  14. TYLENOL [Concomitant]
     Active Substance: ACETAMINOPHEN
  15. PIPERACILLIN AND TAZOBACTAM [Concomitant]
     Active Substance: PIPERACILLIN SODIUM\TAZOBACTAM SODIUM
  16. ATORVASTATIN [Concomitant]
     Active Substance: ATORVASTATIN

REACTIONS (1)
  - Atrial fibrillation [Recovered/Resolved]

NARRATIVE: CASE EVENT DATE: 20200208
